FAERS Safety Report 5160909-0 (Version None)
Quarter: 2006Q4

REPORT INFORMATION
  Report Type: 
  Country: None (occurrence: None)
  Receive Date: 20061130
  Receipt Date: 20061124
  Transmission Date: 20070319
  Serious: Yes (Other)
  Sender: FDA-Public Use
  Company Number: JP-BRACCO-BRO-010952

PATIENT
  Sex: Female

DRUGS (2)
  1. IOPAMIRON [Suspect]
     Route: 050
  2. CORTICOSTEROIDS [Interacting]
     Route: 050

REACTIONS (1)
  - STEVENS-JOHNSON SYNDROME [None]
